FAERS Safety Report 4718004-8 (Version None)
Quarter: 2005Q3

REPORT INFORMATION
  Report Type: 
  Country: None (occurrence: None)
  Receive Date: 20050718
  Receipt Date: 20050308
  Transmission Date: 20060218
  Serious: No
  Sender: FDA-Public Use
  Company Number: 2005000516

PATIENT
  Age: 76 Year
  Sex: Female
  Weight: 55.7924 kg

DRUGS (4)
  1. TARCEVA [Suspect]
     Indication: NON-SMALL CELL LUNG CANCER
     Dosage: 150 MG (QD), ORAL
     Route: 048
     Dates: start: 20050117
  2. ESOMEPRAZOLE (ESOMEPRAZOLE) [Concomitant]
  3. WARFARIN SODIUM [Concomitant]
  4. CITALOPRAM (CITALOPRAM) [Concomitant]

REACTIONS (6)
  - ANAL HAEMORRHAGE [None]
  - ANORECTAL DISORDER [None]
  - DIARRHOEA [None]
  - DRY SKIN [None]
  - FLATULENCE [None]
  - STOMACH DISCOMFORT [None]
